FAERS Safety Report 8546352-2 (Version None)
Quarter: 2012Q3

REPORT INFORMATION
  Report Type: 
  Country: None (occurrence: None)
  Receive Date: 20120727
  Receipt Date: 20111220
  Transmission Date: 20120928
  Serious: No
  Sender: FDA-Public Use
  Company Number: US-ASTRAZENECA-2011SE77045

PATIENT
  Age: 57 Year
  Sex: Female
  Weight: 71.7 kg

DRUGS (10)
  1. SEROQUEL XR [Suspect]
     Indication: BIPOLAR DISORDER
     Route: 048
  2. SEROQUEL XR [Suspect]
     Route: 048
     Dates: start: 20090101
  3. SEROQUEL XR [Suspect]
     Route: 048
     Dates: start: 20020101
  4. SEROQUEL XR [Suspect]
     Indication: DEPRESSION
     Route: 048
  5. SEROQUEL XR [Suspect]
     Indication: SLEEP DISORDER
     Route: 048
  6. SEROQUEL XR [Suspect]
     Route: 048
     Dates: start: 20020101
  7. SEROQUEL XR [Suspect]
     Route: 048
     Dates: start: 20020101
  8. SEROQUEL XR [Suspect]
     Route: 048
     Dates: start: 20090101
  9. SEROQUEL XR [Suspect]
     Route: 048
     Dates: start: 20090101
  10. GENERIC OF PAXIL [Concomitant]

REACTIONS (2)
  - SOMNOLENCE [None]
  - DRUG PRESCRIBING ERROR [None]
